FAERS Safety Report 17820681 (Version 2)
Quarter: 2022Q3

REPORT INFORMATION
  Report Type: Report from Study
  Country: CA (occurrence: CA)
  Receive Date: 20200525
  Receipt Date: 20220711
  Transmission Date: 20221027
  Serious: Yes (Hospitalization, Other)
  Sender: FDA-Public Use
  Company Number: CA-PFIZER INC-2020202979

PATIENT
  Age: 75 Year
  Sex: Male
  Weight: 72 kg

DRUGS (15)
  1. LIPITOR [Suspect]
     Active Substance: ATORVASTATIN CALCIUM
     Route: 065
  2. METFORMIN [Suspect]
     Active Substance: METFORMIN HYDROCHLORIDE
  3. NUCALA [Suspect]
     Active Substance: MEPOLIZUMAB
     Indication: Asthma
     Dosage: 100 MG
     Route: 042
  4. NUCALA [Suspect]
     Active Substance: MEPOLIZUMAB
     Dosage: 100 MG
     Route: 042
  5. NUCALA [Suspect]
     Active Substance: MEPOLIZUMAB
     Dosage: 100 MG
     Route: 042
  6. PREDNISONE [Suspect]
     Active Substance: PREDNISONE
     Indication: Asthma
  7. ALBUTEROL SULFATE [Suspect]
     Active Substance: ALBUTEROL SULFATE
     Route: 065
  8. SYMBICORT [Suspect]
     Active Substance: BUDESONIDE\FORMOTEROL FUMARATE DIHYDRATE
     Dosage: 2 DOSAGE FORMS, 2 EVERY 1 DAYS
  9. UMECLIDINIUM BROMIDE [Suspect]
     Active Substance: UMECLIDINIUM BROMIDE
     Dosage: 1 DF, 1X/DAY
  10. ASPIRIN [Suspect]
     Active Substance: ASPIRIN
  11. ATROVENT [Suspect]
     Active Substance: IPRATROPIUM BROMIDE
  12. BISOPROLOL [Suspect]
     Active Substance: BISOPROLOL
  13. BREO ELLIPTA [Suspect]
     Active Substance: FLUTICASONE FUROATE\VILANTEROL TRIFENATATE
     Dosage: 1 DF, 1X/DAY
  14. GLIPIZIDE [Suspect]
     Active Substance: GLIPIZIDE
  15. BUDESONIDE\FORMOTEROL FUMARATE [Suspect]
     Active Substance: BUDESONIDE\FORMOTEROL FUMARATE

REACTIONS (20)
  - Chest pain [Unknown]
  - Musculoskeletal pain [Unknown]
  - Malaise [Unknown]
  - Therapeutic product effect incomplete [Unknown]
  - Asthma [Unknown]
  - Full blood count abnormal [Unknown]
  - Blood iron decreased [Unknown]
  - Cough [Unknown]
  - Eosinophil count increased [Unknown]
  - Expiratory reserve volume decreased [Unknown]
  - Forced expiratory volume decreased [Unknown]
  - Heart rate decreased [Unknown]
  - Inspiratory capacity decreased [Unknown]
  - Myocardial infarction [Unknown]
  - Obstructive airways disorder [Unknown]
  - Respiration abnormal [Unknown]
  - Thrombosis [Unknown]
  - Vital capacity decreased [Unknown]
  - Wheezing [Unknown]
  - Arthralgia [Unknown]
